FAERS Safety Report 7473414-3 (Version None)
Quarter: 2011Q2

REPORT INFORMATION
  Report Type: 
  Country: None (occurrence: None)
  Receive Date: 20110511
  Receipt Date: 20110429
  Transmission Date: 20111010
  Serious: Yes (Other)
  Sender: FDA-Public Use
  Company Number: US-CELGENEUS-163-20785-11050238

PATIENT
  Age: 53 Year
  Sex: Female

DRUGS (7)
  1. FILGRASTIM [Concomitant]
     Dosage: 10 MICROGRAM
     Route: 058
  2. DEXAMETHASONE [Suspect]
     Route: 065
  3. MELPHALAN HYDROCHLORIDE [Concomitant]
     Dosage: 2 MILLIGRAM/KILOGRAM
     Route: 048
  4. MELPHALAN HYDROCHLORIDE [Concomitant]
     Dosage: 200 MILLIGRAM/SQ. METER
     Route: 051
  5. THALOMID [Suspect]
     Route: 048
  6. CYCLOPHOSPHAMIDE [Concomitant]
     Dosage: 4 G/M2
     Route: 051
  7. AMIFOSTINE [Concomitant]
     Dosage: 740 MILLICURIES
     Route: 051

REACTIONS (2)
  - ACUTE GRAFT VERSUS HOST DISEASE IN INTESTINE [None]
  - ACUTE GRAFT VERSUS HOST DISEASE IN LIVER [None]
